FAERS Safety Report 17178720 (Version 2)
Quarter: 2019Q4

REPORT INFORMATION
  Report Type: Spontaneous
  Country: BR (occurrence: BR)
  Receive Date: 20191219
  Receipt Date: 20191227
  Transmission Date: 20200122
  Serious: Yes (Death, Other)
  Sender: FDA-Public Use
  Company Number: BR-BIOMARINAP-BR-2019-127514

PATIENT
  Age: 50 Year
  Sex: Male
  Weight: 48 kg

DRUGS (1)
  1. ALDURAZYME [Suspect]
     Active Substance: LARONIDASE
     Indication: MUCOPOLYSACCHARIDOSIS I
     Dosage: 2.9 MILLIGRAM
     Route: 041

REACTIONS (8)
  - Cough [Unknown]
  - Complication associated with device [Fatal]
  - Hypertension [Unknown]
  - Haemoptysis [Unknown]
  - Diabetes mellitus [Unknown]
  - Skin discolouration [Unknown]
  - Cardiomegaly [Unknown]
  - Oxygen saturation decreased [Unknown]
